FAERS Safety Report 14065339 (Version 3)
Quarter: 2025Q2

REPORT INFORMATION
  Report Type: Report from Study
  Country: US (occurrence: US)
  Receive Date: 20171009
  Receipt Date: 20250506
  Transmission Date: 20250716
  Serious: Yes (Other)
  Sender: TAKEDA
  Company Number: US-TAKEDA-2017TUS020473

PATIENT
  Age: 35 Year
  Sex: Female
  Weight: 119.72 kg

DRUGS (6)
  1. VEDOLIZUMAB [Suspect]
     Active Substance: VEDOLIZUMAB
     Indication: Crohn^s disease
  2. VEDOLIZUMAB [Suspect]
     Active Substance: VEDOLIZUMAB
     Indication: Crohn^s disease
  3. VEDOLIZUMAB [Suspect]
     Active Substance: VEDOLIZUMAB
  4. INFED [Concomitant]
     Active Substance: IRON DEXTRAN
     Indication: Iron deficiency anaemia
  5. ZEGERID [Concomitant]
     Active Substance: OMEPRAZOLE\SODIUM BICARBONATE
  6. CELEXA [Concomitant]
     Active Substance: CITALOPRAM HYDROBROMIDE

REACTIONS (10)
  - Neutropenia [Unknown]
  - Light chain analysis increased [Unknown]
  - Thrombosis [Unknown]
  - Paraproteinaemia [Unknown]
  - Light chain analysis abnormal [Unknown]
  - Cold sweat [Unknown]
  - White blood cell count decreased [Unknown]
  - Hyperhidrosis [Unknown]
  - Flushing [Unknown]
  - Asthenia [Unknown]

NARRATIVE: CASE EVENT DATE: 20170805
